FAERS Safety Report 23757318 (Version 1)
Quarter: 2024Q2

REPORT INFORMATION
  Report Type: Spontaneous
  Country: US (occurrence: None)
  Receive Date: 20240418
  Receipt Date: 20240418
  Transmission Date: 20240716
  Serious: Yes (Hospitalization)
  Sender: FDA-Public Use
  Company Number: None

PATIENT
  Age: 74 Year
  Sex: Male
  Weight: 58.5 kg

DRUGS (22)
  1. CEMIPLIMAB [Suspect]
     Active Substance: CEMIPLIMAB
     Indication: Squamous cell carcinoma of the tongue
     Dosage: OTHER FREQUENCY : 3 WEEKS;?
     Route: 042
     Dates: start: 20231220, end: 20240221
  2. POTASSIUM CHLORIDE [Concomitant]
     Active Substance: POTASSIUM CHLORIDE
  3. LACTULOSE [Concomitant]
     Active Substance: LACTULOSE
  4. OXYCODONE [Concomitant]
     Active Substance: OXYCODONE\OXYCODONE HYDROCHLORIDE
  5. AMLODIPINE [Concomitant]
     Active Substance: AMLODIPINE BESYLATE
  6. ASPIRIN [Concomitant]
     Active Substance: ASPIRIN
  7. ATORVASTATIN [Concomitant]
     Active Substance: ATORVASTATIN
  8. Cynocobalamine [Concomitant]
  9. DEXAMETHASONE [Concomitant]
     Active Substance: DEXAMETHASONE
  10. FENTANYL [Concomitant]
     Active Substance: FENTANYL\FENTANYL CITRATE
  11. FLUCONAZOLE [Concomitant]
     Active Substance: FLUCONAZOLE
  12. GABAPENTIN [Concomitant]
     Active Substance: GABAPENTIN
  13. LIDOCAINE [Concomitant]
     Active Substance: LIDOCAINE
  14. LOPERAMIDE [Concomitant]
     Active Substance: LOPERAMIDE
  15. Iosartan [Concomitant]
  16. MOMETASONE [Concomitant]
     Active Substance: MOMETASONE
  17. Ployethylene glycol [Concomitant]
  18. OMEPRAZOLE [Concomitant]
     Active Substance: OMEPRAZOLE
  19. PYRIDOXINE [Concomitant]
     Active Substance: PYRIDOXINE
  20. Sodium chloride nasal spray [Concomitant]
  21. DOCETAXEL [Suspect]
     Active Substance: DOCETAXEL\DOCETAXEL ANHYDROUS
  22. CISPLATIN [Suspect]
     Active Substance: CISPLATIN

REACTIONS (2)
  - Hyponatraemia [None]
  - Fatigue [None]

NARRATIVE: CASE EVENT DATE: 20240417
